FAERS Safety Report 6639993-0 (Version None)
Quarter: 2010Q1

REPORT INFORMATION
  Report Type: 
  Country: None (occurrence: None)
  Receive Date: 20100318
  Receipt Date: 20100304
  Transmission Date: 20100710
  Serious: No
  Sender: FDA-Public Use
  Company Number: US-B.I. PHARMACEUTICALS,INC./RIDGEFIELD-2010-BP-01629BP

PATIENT
  Sex: Female

DRUGS (9)
  1. CATAPRES-TTS-1 [Suspect]
     Indication: HYPERTENSION
     Dosage: 0.1 MG
     Route: 061
     Dates: start: 20080701, end: 20100219
  2. SINEMET [Concomitant]
     Indication: PARKINSON'S DISEASE
  3. LANOXIN [Concomitant]
     Indication: CARDIAC DISORDER
  4. MIRTAZAPINE [Concomitant]
     Dosage: 30 MG
  5. ASPIRIN [Concomitant]
  6. FISH OIL [Concomitant]
  7. METAMUCIL-2 [Concomitant]
  8. ADVIL LIQUI-GELS [Concomitant]
  9. TUMS [Concomitant]

REACTIONS (3)
  - APPLICATION SITE ERYTHEMA [None]
  - APPLICATION SITE PAIN [None]
  - APPLICATION SITE PRURITUS [None]
